FAERS Safety Report 16314272 (Version 1)
Quarter: 2019Q2

REPORT INFORMATION
  Report Type: Spontaneous
  Country: US (occurrence: US)
  Receive Date: 20190514
  Receipt Date: 20190514
  Transmission Date: 20190711
  Serious: No
  Sender: FDA-Public Use
  Company Number: None

PATIENT
  Age: 13 Year
  Sex: Female

DRUGS (17)
  1. PLAQUENIL [Concomitant]
     Active Substance: HYDROXYCHLOROQUINE SULFATE
  2. DESMOPRESSIN [Concomitant]
     Active Substance: DESMOPRESSIN
  3. ORKAMBI [Suspect]
     Active Substance: IVACAFTOR\LUMACAFTOR
     Indication: CYSTIC FIBROSIS
     Route: 048
     Dates: start: 20170720
  4. ZYRTEC CHILD TAB [Concomitant]
  5. PERTZYE [Concomitant]
     Active Substance: PANCRELIPASE AMYLASE\PANCRELIPASE LIPASE\PANCRELIPASE PROTEASE
  6. ALBUTEROL NEB [Concomitant]
  7. HYPERSAL NEB [Concomitant]
  8. FLOVENT [Concomitant]
     Active Substance: FLUTICASONE PROPIONATE
  9. NAPROXEN. [Concomitant]
     Active Substance: NAPROXEN
  10. AZITHROMYCIN TAB [Concomitant]
  11. PREVACID [Concomitant]
     Active Substance: LANSOPRAZOLE
  12. LANSOPRAZOLE. [Concomitant]
     Active Substance: LANSOPRAZOLE
  13. HYDROXYCHLOR TAB [Concomitant]
  14. OMNITROPE [Concomitant]
     Active Substance: SOMATROPIN
  15. VITAMIN A CAP [Concomitant]
  16. MIRALAX [Concomitant]
     Active Substance: POLYETHYLENE GLYCOL 3350
  17. PULMOZYME [Concomitant]
     Active Substance: DORNASE ALFA

REACTIONS (3)
  - Feeding disorder [None]
  - Therapy cessation [None]
  - Migraine [None]

NARRATIVE: CASE EVENT DATE: 20180513
